FAERS Safety Report 9004645 (Version 1)
Quarter: 2012Q4

REPORT INFORMATION
  Report Type: Spontaneous
  Country: IT (occurrence: None)
  Receive Date: 20121227
  Receipt Date: 20121227
  Transmission Date: 20130627
  Serious: Yes (Other)
  Sender: FDA-Public Use
  Company Number: AUR-APL-2012-05525

PATIENT
  Age: 61 Year
  Sex: Female

DRUGS (1)
  1. AMOXICILLIN (AMOXICILLIN) [Suspect]
     Route: 048
     Dates: start: 20120727, end: 20120727

REACTIONS (6)
  - Asthenia [None]
  - Diarrhoea [None]
  - Erythema [None]
  - Face oedema [None]
  - Hypotension [None]
  - Pallor [None]
